FAERS Safety Report 12306166 (Version 1)
Quarter: 2016Q2

REPORT INFORMATION
  Report Type: Spontaneous
  Country: US (occurrence: US)
  Receive Date: 20160426
  Receipt Date: 20160426
  Transmission Date: 20160815
  Serious: Yes (Death, Other)
  Sender: FDA-Public Use
  Company Number: US-UNITED THERAPEUTICS-UNT-2016-006531

PATIENT
  Sex: Female

DRUGS (1)
  1. REMODULIN [Suspect]
     Active Substance: TREPROSTINIL
     Indication: PULMONARY ARTERIAL HYPERTENSION
     Dosage: 0.050 ?G/KG, CONTINUING
     Route: 041
     Dates: start: 20130816

REACTIONS (4)
  - Loss of consciousness [Unknown]
  - Thirst [Unknown]
  - Death [Fatal]
  - Feeling hot [Unknown]

NARRATIVE: CASE EVENT DATE: 20160418
